FAERS Safety Report 9292657 (Version 1)
Quarter: 2013Q2

REPORT INFORMATION
  Report Type: Spontaneous
  Country: US (occurrence: US)
  Receive Date: 20130516
  Receipt Date: 20130516
  Transmission Date: 20140414
  Serious: Yes (Death, Hospitalization)
  Sender: FDA-Public Use
  Company Number: US-ELI_LILLY_AND_COMPANY-US201305003865

PATIENT
  Age: 65 Year
  Sex: Male

DRUGS (2)
  1. PRASUGREL HYDROCHLORIDE [Suspect]
     Indication: CORONARY ARTERY OCCLUSION
     Dosage: 10 MG, QD
     Route: 048
  2. ASPIRIN [Concomitant]
     Dosage: 81 MG, QD

REACTIONS (4)
  - Sepsis [Fatal]
  - Systemic inflammatory response syndrome [Not Recovered/Not Resolved]
  - Contusion [Unknown]
  - Off label use [Unknown]
